FAERS Safety Report 25858852 (Version 1)
Quarter: 2025Q3

REPORT INFORMATION
  Report Type: Spontaneous
  Country: US (occurrence: US)
  Receive Date: 20250929
  Receipt Date: 20250929
  Transmission Date: 20251021
  Serious: No
  Sender: ACADIA PHARMACEUTICALS
  Company Number: US-ACADIA PHARMACEUTICALS INC.-ACA-2025-TRF-010725

PATIENT
  Age: 22 Year
  Sex: Female

DRUGS (12)
  1. DAYBUE [Suspect]
     Active Substance: TROFINETIDE
     Indication: Rett syndrome
     Dosage: 20 MILLILITER, BID
     Route: 048
     Dates: start: 20230801, end: 20230901
  2. PALIPERIDONE [Concomitant]
     Active Substance: PALIPERIDONE
  3. LAMOTRIGINE [Concomitant]
     Active Substance: LAMOTRIGINE
  4. GUANFACINE [Concomitant]
     Active Substance: GUANFACINE
  5. CLONAZEPAM [Concomitant]
     Active Substance: CLONAZEPAM
  6. PANTOPRAZOLE [Concomitant]
     Active Substance: PANTOPRAZOLE
  7. CETIRIZINE [Concomitant]
     Active Substance: CETIRIZINE HYDROCHLORIDE
  8. FLUTICASONE [Concomitant]
     Active Substance: FLUTICASONE
  9. GAVILAX [Concomitant]
     Active Substance: POLYETHYLENE GLYCOL 3350
  10. MIRALAX [Concomitant]
     Active Substance: POLYETHYLENE GLYCOL 3350
  11. MELATONIN [Concomitant]
     Active Substance: MELATONIN
  12. VITAMINS NOS [Concomitant]
     Active Substance: VITAMINS
     Dates: start: 20230714

REACTIONS (3)
  - Sleep disorder [Unknown]
  - Aggression [Unknown]
  - Underdose [Unknown]
